FAERS Safety Report 6226743-5 (Version None)
Quarter: 2009Q2

REPORT INFORMATION
  Report Type: 
  Country: None (occurrence: None)
  Receive Date: 20090612
  Receipt Date: 20090521
  Transmission Date: 20091009
  Serious: No
  Sender: FDA-Public Use
  Company Number: US-ABBOTT-09P-163-0575061-00

PATIENT
  Sex: Male

DRUGS (7)
  1. HUMIRA [Suspect]
     Indication: PSORIASIS
     Route: 058
     Dates: start: 20051001, end: 20051001
  2. HUMIRA [Suspect]
     Indication: PSORIATIC ARTHROPATHY
     Route: 058
  3. HUMIRA [Suspect]
     Route: 058
     Dates: start: 20081001
  4. HUMIRA [Suspect]
     Route: 058
     Dates: start: 20090330
  5. METHOTREXATE [Concomitant]
     Indication: DRUG USE FOR UNKNOWN INDICATION
  6. PREDNISONE [Concomitant]
     Indication: DRUG USE FOR UNKNOWN INDICATION
     Route: 048
     Dates: start: 20090101
  7. PREDNISONE [Concomitant]
     Route: 048
     Dates: end: 20090101

REACTIONS (4)
  - DRUG EFFECT DECREASED [None]
  - PSORIASIS [None]
  - PSORIATIC ARTHROPATHY [None]
  - TUBERCULOSIS [None]
